FAERS Safety Report 5411830-1 (Version None)
Quarter: 2007Q3

REPORT INFORMATION
  Report Type: 
  Country: None (occurrence: None)
  Receive Date: 20070813
  Receipt Date: 20070802
  Transmission Date: 20080115
  Serious: Yes (Hospitalization)
  Sender: FDA-Public Use
  Company Number: JP-JNJFOC-20061105128

PATIENT
  Sex: Male
  Weight: 80 kg

DRUGS (22)
  1. REMICADE [Suspect]
     Route: 042
  2. REMICADE [Suspect]
     Route: 042
  3. REMICADE [Suspect]
     Route: 042
  4. REMICADE [Suspect]
     Route: 042
  5. REMICADE [Suspect]
     Route: 042
  6. REMICADE [Suspect]
     Route: 042
  7. REMICADE [Suspect]
     Route: 042
  8. REMICADE [Suspect]
     Route: 042
  9. REMICADE [Suspect]
     Route: 042
  10. REMICADE [Suspect]
     Route: 042
  11. REMICADE [Suspect]
     Indication: CROHN'S DISEASE
     Route: 042
  12. IMURAN [Suspect]
     Indication: CROHN'S DISEASE
     Route: 048
  13. LIPITOR [Suspect]
     Indication: HYPERLIPIDAEMIA
     Route: 048
  14. LOXONIN [Concomitant]
     Indication: ARTHRALGIA
     Route: 048
  15. LANSOPRAZOLE [Concomitant]
     Indication: REFLUX OESOPHAGITIS
     Route: 048
  16. SOLU-CORTEF [Concomitant]
     Indication: CROHN'S DISEASE
     Route: 042
  17. PREDONINE [Concomitant]
     Indication: CROHN'S DISEASE
     Route: 048
  18. PENTASA [Concomitant]
     Indication: CROHN'S DISEASE
     Route: 048
  19. ROXATIDINE ACETATE HCL [Concomitant]
     Route: 048
  20. DIOVAN [Concomitant]
     Indication: HYPERTENSION
     Route: 048
  21. NORVASC [Concomitant]
     Indication: HYPERTENSION
     Route: 048
  22. RISEDRONATE SODIUM [Concomitant]
     Indication: OSTEOPOROSIS
     Route: 048

REACTIONS (3)
  - ANOREXIA [None]
  - MALAISE [None]
  - WEIGHT DECREASED [None]
